FAERS Safety Report 9285238 (Version 1)
Quarter: 2013Q2

REPORT INFORMATION
  Report Type: Report from Study
  Country: CA (occurrence: CA)
  Receive Date: 20130513
  Receipt Date: 20130513
  Transmission Date: 20140414
  Serious: Yes (Hospitalization)
  Sender: FDA-Public Use
  Company Number: CA-JNJFOC-20130301551

PATIENT
  Age: 25 Year
  Sex: Male
  Weight: 65 kg

DRUGS (3)
  1. REMICADE [Suspect]
     Indication: CROHN^S DISEASE
     Route: 042
     Dates: start: 20120614
  2. AMITRIPTYLINE [Concomitant]
     Route: 065
  3. TECTA [Concomitant]
     Route: 065

REACTIONS (3)
  - Cholecystectomy [Unknown]
  - Exploratory operation [Unknown]
  - Procedural pain [Unknown]
